FAERS Safety Report 15335794 (Version 1)
Quarter: 2018Q3

REPORT INFORMATION
  Report Type: Spontaneous
  Country: JP (occurrence: JP)
  Receive Date: 20180830
  Receipt Date: 20180830
  Transmission Date: 20181010
  Serious: Yes (Life-Threatening)
  Sender: FDA-Public Use
  Company Number: JP-CELGENEUS-JPN-20180809646

PATIENT
  Age: 76 Year
  Sex: Male

DRUGS (1)
  1. REVLIMID [Suspect]
     Active Substance: LENALIDOMIDE
     Indication: PLASMA CELL MYELOMA
     Dosage: UNKNOWN
     Route: 048
     Dates: start: 20180720

REACTIONS (2)
  - Pyrexia [Recovered/Resolved]
  - Disseminated intravascular coagulation [Recovered/Resolved]

NARRATIVE: CASE EVENT DATE: 20180815
